FAERS Safety Report 24293485 (Version 1)
Quarter: 2024Q3

REPORT INFORMATION
  Report Type: Spontaneous
  Country: US (occurrence: None)
  Receive Date: 20240906
  Receipt Date: 20240906
  Transmission Date: 20241017
  Serious: No
  Sender: DOMPE FARMACEUTICI
  Company Number: US-FARMAPROD-202308-202401-0164

PATIENT
  Sex: Female

DRUGS (10)
  1. OXERVATE [Suspect]
     Active Substance: CENEGERMIN-BKBJ
     Indication: Neurotrophic keratopathy
     Route: 047
     Dates: start: 20240110
  2. REFRESH TEARS [Concomitant]
     Active Substance: CARBOXYMETHYLCELLULOSE SODIUM
  3. ATORVASTATIN CALCIUM [Concomitant]
     Active Substance: ATORVASTATIN CALCIUM
  4. VITAMINS [Concomitant]
     Active Substance: VITAMINS
  5. ASPIRIN [Concomitant]
     Active Substance: ASPIRIN
  6. METHOCARBAMOL [Concomitant]
     Active Substance: METHOCARBAMOL
  7. GABAPENTIN [Concomitant]
     Active Substance: GABAPENTIN
  8. CELECOXIB [Concomitant]
     Active Substance: CELECOXIB
  9. NAPROXEN [Concomitant]
     Active Substance: NAPROXEN
  10. JARDIANCE [Concomitant]
     Active Substance: EMPAGLIFLOZIN

REACTIONS (1)
  - Ocular discomfort [Unknown]
